FAERS Safety Report 4773545-2 (Version None)
Quarter: 2005Q3

REPORT INFORMATION
  Report Type: 
  Country: None (occurrence: None)
  Receive Date: 20050920
  Receipt Date: 20041129
  Transmission Date: 20060218
  Serious: Yes (Other)
  Sender: FDA-Public Use
  Company Number: US-BRISTOL-MYERS SQUIBB COMPANY-12776548

PATIENT
  Age: 46 Year
  Sex: Female
  Weight: 91 kg

DRUGS (5)
  1. BUSPAR [Suspect]
     Indication: ANXIETY
     Route: 048
     Dates: start: 20040825, end: 20041012
  2. CARBATROL [Concomitant]
  3. METHOTREXATE [Concomitant]
  4. GLUCOVANCE [Concomitant]
  5. SYNTHROID [Concomitant]

REACTIONS (1)
  - CONVULSION [None]
